FAERS Safety Report 25764808 (Version 5)
Quarter: 2025Q4

REPORT INFORMATION
  Report Type: Report from Study
  Country: EU (occurrence: EU)
  Receive Date: 20250905
  Receipt Date: 20251117
  Transmission Date: 20260117
  Serious: Yes (Hospitalization, Other)
  Sender: JOHNSON AND JOHNSON
  Company Number: EU-JNJFOC-20250832727

PATIENT
  Age: 83 Year
  Sex: Female
  Weight: 48.0 kg

DRUGS (3)
  1. TECLISTAMAB [Suspect]
     Active Substance: TECLISTAMAB
     Indication: Plasma cell myeloma
     Dosage: THERAPY END DATE: 28-DEC-2023
     Dates: start: 20231228, end: 20231228
  2. TECLISTAMAB [Suspect]
     Active Substance: TECLISTAMAB
     Dosage: STEP-UP DOSE 2, THERAPY END DATE: 03-JAN-2024
     Route: 065
     Dates: start: 20240103, end: 20240103
  3. TECLISTAMAB [Suspect]
     Active Substance: TECLISTAMAB
     Dosage: FIRST MAINTENANCE DOSE, THERAPY END DATE: 09-JAN-2024
     Route: 065
     Dates: start: 20240109, end: 20240109

REACTIONS (11)
  - Cytokine release syndrome [Recovered/Resolved]
  - Myasthenia gravis [Recovered/Resolved]
  - Pneumonitis [Recovered/Resolved]
  - Hypokalaemia [Recovered/Resolved]
  - Chills [Recovered/Resolved]
  - Pain [Recovered/Resolved]
  - Anaemia [Recovered/Resolved]
  - Nausea [Recovered/Resolved]
  - Epistaxis [Recovered/Resolved]
  - Cough [Recovered/Resolved]
  - Laryngeal inflammation [Recovered/Resolved]

NARRATIVE: CASE EVENT DATE: 20240103
